FAERS Safety Report 6832382-5 (Version None)
Quarter: 2010Q3

REPORT INFORMATION
  Report Type: 
  Country: None (occurrence: None)
  Receive Date: 20100707
  Receipt Date: 20100623
  Transmission Date: 20110219
  Serious: Yes (Life-Threatening, Hospitalization)
  Sender: FDA-Public Use
  Company Number: 7008863

PATIENT
  Age: 36 Year
  Sex: Male
  Weight: 77 kg

DRUGS (1)
  1. REBIF [Suspect]
     Indication: MULTIPLE SCLEROSIS
     Dosage: 22, SUBCUTANEOUS
     Route: 058
     Dates: start: 20100101, end: 20100501

REACTIONS (1)
  - SUICIDAL IDEATION [None]
